FAERS Safety Report 6311518-9 (Version None)
Quarter: 2009Q3

REPORT INFORMATION
  Report Type: 
  Country: None (occurrence: None)
  Receive Date: 20090817
  Receipt Date: 20090810
  Transmission Date: 20100115
  Serious: Yes (Hospitalization)
  Sender: FDA-Public Use
  Company Number: PHHO2009PL09822

PATIENT
  Sex: Male
  Weight: 95 kg

DRUGS (1)
  1. AMN107 AMN+CAP [Suspect]
     Indication: CHRONIC MYELOID LEUKAEMIA
     Dosage: 300 MG TWICE DAILY
     Dates: start: 20080206

REACTIONS (1)
  - MYOCARDIAL INFARCTION [None]
